FAERS Safety Report 10497213 (Version 1)
Quarter: 2014Q4

REPORT INFORMATION
  Report Type: Spontaneous
  Country: US (occurrence: US)
  Receive Date: 20141006
  Receipt Date: 20141006
  Transmission Date: 20150528
  Serious: Yes (Hospitalization, Other)
  Sender: FDA-Public Use
  Company Number: US-AMGEN-USASP2014075218

PATIENT
  Age: 58 Year
  Sex: Male

DRUGS (1)
  1. ENBREL [Suspect]
     Active Substance: ETANERCEPT
     Indication: RHEUMATOID ARTHRITIS
     Dosage: 50 MG, QWK
     Route: 065
     Dates: start: 20001001

REACTIONS (8)
  - Memory impairment [Not Recovered/Not Resolved]
  - Dyspnoea [Not Recovered/Not Resolved]
  - Arthralgia [Recovered/Resolved]
  - Confusional state [Not Recovered/Not Resolved]
  - Joint swelling [Recovered/Resolved]
  - Spinal operation [Unknown]
  - Thrombosis [Unknown]
  - Joint effusion [Recovered/Resolved]
